FAERS Safety Report 10586687 (Version 1)
Quarter: 2014Q4

REPORT INFORMATION
  Report Type: Spontaneous
  Country: US (occurrence: US)
  Receive Date: 20141117
  Receipt Date: 20141117
  Transmission Date: 20150529
  Serious: Yes (Hospitalization)
  Sender: FDA-Public Use
  Company Number: US-AUROBINDO-AUR-APL-2014-11978

PATIENT
  Age: 65 Year
  Sex: Female

DRUGS (1)
  1. LOSARTAN 50MG PACK [Suspect]
     Active Substance: LOSARTAN
     Indication: HYPERTENSION
     Dosage: 50 MG, UNK
     Route: 065

REACTIONS (10)
  - Alanine aminotransferase increased [Recovered/Resolved]
  - Hepatotoxicity [Recovering/Resolving]
  - Abdominal pain [Recovered/Resolved]
  - Nausea [Recovered/Resolved]
  - Liver injury [Recovered/Resolved]
  - Abdominal tenderness [Recovered/Resolved]
  - Aspartate aminotransferase increased [Recovered/Resolved]
  - Vomiting [Recovered/Resolved]
  - Blood bilirubin increased [Recovered/Resolved]
  - Blood alkaline phosphatase increased [Recovered/Resolved]
